FAERS Safety Report 10147084 (Version 1)
Quarter: 2014Q2

REPORT INFORMATION
  Report Type: Spontaneous
  Country: US (occurrence: None)
  Receive Date: 20140430
  Receipt Date: 20140430
  Transmission Date: 20141212
  Serious: Yes (Hospitalization)
  Sender: FDA-Public Use
  Company Number: None

PATIENT
  Age: 35 Year
  Sex: Female

DRUGS (6)
  1. WARFARIN [Suspect]
     Indication: PULMONARY ARTERY ATRESIA
     Dosage: 6 MG (4 DAYS OF THE WEEK) AND 7
     Route: 048
     Dates: start: 20140106
  2. GUAIFENCAIN-CODEINE [Concomitant]
  3. FUROSEMIDE [Concomitant]
  4. LISINOPRIL [Concomitant]
  5. RANITIDINE [Concomitant]
  6. TADALAFIL [Concomitant]

REACTIONS (5)
  - Haemoptysis [None]
  - Cough [None]
  - International normalised ratio increased [None]
  - Dyspnoea [None]
  - Oxygen saturation decreased [None]
